FAERS Safety Report 16535263 (Version 2)
Quarter: 2020Q2

REPORT INFORMATION
  Report Type: Spontaneous
  Country: US (occurrence: US)
  Receive Date: 20190705
  Receipt Date: 20200424
  Transmission Date: 20200713
  Serious: Yes (Hospitalization, Other)
  Sender: FDA-Public Use
  Company Number: US-ASTRAZENECA-2019SE94726

PATIENT
  Sex: Female
  Weight: 108.9 kg

DRUGS (10)
  1. TUMS [Concomitant]
     Active Substance: CALCIUM CARBONATE
     Dates: start: 2007
  2. MORPHINE [Concomitant]
     Active Substance: MORPHINE
     Indication: BONE CANCER
     Dates: start: 2011, end: 2017
  3. FENTANYL. [Concomitant]
     Active Substance: FENTANYL
     Indication: BONE CANCER
     Dates: start: 2011, end: 2017
  4. NORVASA [Concomitant]
     Indication: HYPERTENSION
     Route: 065
     Dates: start: 2011, end: 2017
  5. ROLAIDS [Concomitant]
     Active Substance: CALCIUM CARBONATE\MAGNESIUM HYDROXIDE
     Dates: start: 2007
  6. GABAPENTIN. [Concomitant]
     Active Substance: GABAPENTIN
     Indication: NEUROPATHY PERIPHERAL
     Route: 065
     Dates: start: 2011, end: 2017
  7. NEXIUM [Suspect]
     Active Substance: ESOMEPRAZOLE MAGNESIUM
     Indication: ULCER
     Route: 048
     Dates: start: 2008, end: 2010
  8. NEXIUM [Suspect]
     Active Substance: ESOMEPRAZOLE MAGNESIUM
     Indication: ULCER
     Route: 048
     Dates: start: 2009, end: 2012
  9. OLAZAPINE [Concomitant]
     Active Substance: OLANZAPINE
     Indication: ANXIETY
     Route: 065
     Dates: start: 2011, end: 2017
  10. ATIVAN [Concomitant]
     Active Substance: LORAZEPAM
     Indication: SLEEP DISORDER
     Route: 065
     Dates: start: 2011, end: 2017

REACTIONS (3)
  - Chronic kidney disease [Unknown]
  - Acute kidney injury [Not Recovered/Not Resolved]
  - Renal failure [Unknown]

NARRATIVE: CASE EVENT DATE: 2011
